FAERS Safety Report 7845019-3 (Version None)
Quarter: 2011Q4

REPORT INFORMATION
  Report Type: 
  Country: None (occurrence: None)
  Receive Date: 20111017
  Receipt Date: 20111007
  Transmission Date: 20120403
  Serious: Yes (Hospitalization, Disabling, Other)
  Sender: FDA-Public Use
  Company Number: 2011SP025677

PATIENT
  Age: 26 Year
  Sex: Female
  Weight: 72.5755 kg

DRUGS (10)
  1. NUVARING [Suspect]
  2. NUVARING [Suspect]
  3. NUVARING [Suspect]
  4. MULTI-VITAMIN [Concomitant]
  5. NUVARING [Suspect]
     Indication: CONTRACEPTION
     Dosage: VAG
  6. NUVARING [Suspect]
     Indication: MENSTRUAL CYCLE MANAGEMENT
     Dosage: VAG
  7. NUVARING [Suspect]
  8. NUVARING [Suspect]
  9. NUVARING [Suspect]
  10. VICOPROFEN [Suspect]
     Indication: PLEURITIC PAIN
     Dosage: 1 DF; ONCE
     Dates: start: 20090608, end: 20090608

REACTIONS (30)
  - PNEUMONIA [None]
  - BRONCHITIS [None]
  - PLATELET COUNT INCREASED [None]
  - ATELECTASIS [None]
  - DEEP VEIN THROMBOSIS [None]
  - ANAEMIA [None]
  - FIBRIN D DIMER INCREASED [None]
  - OVARIAN CYST [None]
  - PULMONARY EMBOLISM [None]
  - URINARY TRACT INFECTION [None]
  - EMOTIONAL DISORDER [None]
  - MIGRAINE [None]
  - BACK INJURY [None]
  - PLEURISY [None]
  - VOMITING [None]
  - INFLUENZA LIKE ILLNESS [None]
  - PULMONARY INFARCTION [None]
  - MENTAL DISORDER [None]
  - ROAD TRAFFIC ACCIDENT [None]
  - METRORRHAGIA [None]
  - PELVIC MASS [None]
  - MULTIPLE INJURIES [None]
  - HYPERCOAGULATION [None]
  - UPPER RESPIRATORY TRACT INFECTION [None]
  - NECK INJURY [None]
  - DRUG INTOLERANCE [None]
  - HYPONATRAEMIA [None]
  - PLEURAL EFFUSION [None]
  - VAGINAL DISCHARGE [None]
  - NAUSEA [None]
